FAERS Safety Report 9604177 (Version 1)
Quarter: 2013Q4

REPORT INFORMATION
  Report Type: Spontaneous
  Country: FR (occurrence: FR)
  Receive Date: 20131008
  Receipt Date: 20131008
  Transmission Date: 20140711
  Serious: Yes (Other)
  Sender: FDA-Public Use
  Company Number: FR-BRISTOL-MYERS SQUIBB COMPANY-19456607

PATIENT
  Age: 2 Year
  Sex: Female

DRUGS (6)
  1. ABILIFY [Suspect]
     Indication: SCHIZOPHRENIA
     Route: 064
     Dates: end: 20130321
  2. DONORMYL [Suspect]
     Indication: INSOMNIA
     Route: 064
     Dates: end: 20130321
  3. CYMBALTA [Suspect]
     Indication: MAJOR DEPRESSION
     Route: 064
     Dates: end: 20130601
  4. ZYPREXA [Suspect]
     Indication: SCHIZOPHRENIA
     Route: 064
     Dates: end: 20130321
  5. NOCTRAN [Suspect]
     Indication: INSOMNIA
     Route: 064
     Dates: end: 20130321
  6. SERESTA [Suspect]
     Indication: ANXIETY DISORDER

REACTIONS (1)
  - Developmental delay [Unknown]
